FAERS Safety Report 7621432-4 (Version None)
Quarter: 2011Q3

REPORT INFORMATION
  Report Type: 
  Country: None (occurrence: None)
  Receive Date: 20110719
  Receipt Date: 20110712
  Transmission Date: 20111222
  Serious: Yes (Hospitalization)
  Sender: FDA-Public Use
  Company Number: US-B.I. PHARMACEUTICALS,INC./RIDGEFIELD-2011-BP-15790BP

PATIENT
  Sex: Female

DRUGS (21)
  1. LISINOPRIL [Concomitant]
     Dosage: 40 MG
  2. PRAVACHOL [Concomitant]
     Dosage: 40 MG
  3. BIOTIN [Concomitant]
  4. WARFARIN SODIUM [Concomitant]
     Indication: ATRIAL FIBRILLATION
     Dosage: 6 MG
  5. COPPER [Concomitant]
  6. VITAMIN E [Concomitant]
  7. PRADAXA [Suspect]
     Indication: ATRIAL FIBRILLATION
     Dosage: 300 MG
     Route: 048
     Dates: start: 20110527, end: 20110528
  8. ASCORBIC ACID [Concomitant]
  9. LASIX [Concomitant]
     Dosage: 10 MG
  10. ASPIRIN [Concomitant]
     Dosage: 81 MG
  11. VITAMIN B-12 [Concomitant]
  12. OXYGEN [Concomitant]
  13. PRILOSEC [Concomitant]
     Dosage: 20 MG
  14. FERROUS SULFATE TAB [Concomitant]
     Dosage: 240 MG
  15. BARIATRIC MULTI (FLINTSTONES COMPLETE) [Concomitant]
  16. MAGNESIUM [Concomitant]
  17. FLAXSEED OIL [Concomitant]
  18. VITAMIN D [Concomitant]
  19. CALCIUM CARBONATE [Concomitant]
     Dosage: 500 MG
  20. VITAMIN B6 [Concomitant]
  21. SILICA [Concomitant]

REACTIONS (5)
  - ASTHENIA [None]
  - DIARRHOEA [None]
  - DEHYDRATION [None]
  - BLOOD PRESSURE DECREASED [None]
  - HEART RATE INCREASED [None]
